FAERS Safety Report 13945691 (Version 1)
Quarter: 2017Q3

REPORT INFORMATION
  Report Type: Spontaneous
  Country: US (occurrence: US)
  Receive Date: 20170907
  Receipt Date: 20170907
  Transmission Date: 20171128
  Serious: No
  Sender: FDA-Public Use
  Company Number: US-BAUSCH-BL-2016-025336

PATIENT
  Age: 37 Year
  Sex: Female

DRUGS (2)
  1. ATRALIN [Suspect]
     Active Substance: TRETINOIN
     Indication: ACNE
     Dosage: APPLIED NIGHTLY
     Route: 061
  2. ATRALIN [Suspect]
     Active Substance: TRETINOIN
     Dosage: APPLIED NIGHTLY
     Route: 061
     Dates: start: 201609

REACTIONS (1)
  - Hair injury [Recovered/Resolved]
